FAERS Safety Report 8057313-4 (Version None)
Quarter: 2012Q1

REPORT INFORMATION
  Report Type: 
  Country: None (occurrence: None)
  Receive Date: 20120119
  Receipt Date: 20120113
  Transmission Date: 20120608
  Serious: Yes (Other)
  Sender: FDA-Public Use
  Company Number: US-ASTRAZENECA-2011SE27742

PATIENT
  Age: 49 Year
  Sex: Female
  Weight: 99.8 kg

DRUGS (5)
  1. CLONIPINE [Concomitant]
     Indication: DEPRESSION
  2. SEROQUEL XR [Suspect]
     Indication: SUICIDAL IDEATION
     Route: 048
  3. SEROQUEL XR [Suspect]
     Route: 048
     Dates: start: 20100121
  4. CLONIPINE [Concomitant]
     Indication: ANXIETY
  5. CELEXA [Concomitant]

REACTIONS (3)
  - SYSTEMIC LUPUS ERYTHEMATOSUS [None]
  - THERAPEUTIC RESPONSE UNEXPECTED [None]
  - OFF LABEL USE [None]
